FAERS Safety Report 13857689 (Version 2)
Quarter: 2017Q3

REPORT INFORMATION
  Report Type: Spontaneous
  Country: IT (occurrence: IT)
  Receive Date: 20170811
  Receipt Date: 20170818
  Transmission Date: 20171127
  Serious: Yes (Life-Threatening, Hospitalization)
  Sender: FDA-Public Use
  Company Number: IT-ALVOGEN-2017-ALVOGEN-093055

PATIENT
  Age: 57 Year
  Sex: Male
  Weight: 65 kg

DRUGS (2)
  1. ATENOLOL. [Suspect]
     Active Substance: ATENOLOL
     Indication: SUICIDE ATTEMPT
     Dosage: TOTAL 2800 MG; MAXIMUM RECOMMENDED DAILY DOSE 300 MG
     Route: 048
  2. VERAPAMIL [Suspect]
     Active Substance: VERAPAMIL HYDROCHLORIDE
     Indication: SUICIDE ATTEMPT
     Dosage: TOTAL 1600 MG, MINIMUM REPORTED LETHAL DOSE 1400 MG
     Route: 048

REACTIONS (13)
  - Pulse absent [Recovered/Resolved]
  - Intentional overdose [Recovered/Resolved]
  - Suicide attempt [Recovered/Resolved]
  - Drug level increased [Recovered/Resolved]
  - Drug use disorder [Recovered/Resolved]
  - Poisoning [Recovered/Resolved]
  - Bradycardia [Recovered/Resolved]
  - Hypotension [Recovered/Resolved]
  - Pulmonary oedema [Recovered/Resolved]
  - Sinus bradycardia [Recovered/Resolved]
  - Heart rate decreased [Recovered/Resolved]
  - Atrioventricular block first degree [Recovered/Resolved]
  - Coma [Recovered/Resolved]
